FAERS Safety Report 10175519 (Version 2)
Quarter: 2014Q2

REPORT INFORMATION
  Report Type: Spontaneous
  Country: US (occurrence: US)
  Receive Date: 20140516
  Receipt Date: 20140516
  Transmission Date: 20141212
  Serious: Yes (Other)
  Sender: FDA-Public Use
  Company Number: PHHY2014US007059

PATIENT
  Age: 59 Year
  Sex: Male

DRUGS (20)
  1. METOCLOPRAMIDE [Suspect]
     Indication: IMPAIRED GASTRIC EMPTYING
     Dosage: 5 MG, TID
  2. ALUMINIUM HYDROXIDE/MAGNESIUM TRISILICATE [Suspect]
  3. AMIODARONE [Concomitant]
     Dosage: 200 MG, QD
  4. ASPIRIN [Concomitant]
     Dosage: 81 MG, QD
  5. CALCITRIOL [Concomitant]
     Dosage: 0.25 UG, QD
  6. CALCIUM CARBONATE W/VITAMIN D NOS [Concomitant]
     Dosage: 1 DF, BID
  7. CLOBETASOL [Concomitant]
     Dosage: 1 DF, BID
  8. FUROSEMIDE [Concomitant]
     Dosage: 20 MG, BID
  9. INSULIN ASPART [Concomitant]
  10. INSULIN HUMAN [Concomitant]
     Dosage: 36 U, MORNING
  11. INSULIN HUMAN [Concomitant]
     Dosage: 24 U, BEDTIME
  12. LEFLUNOMIDE [Concomitant]
     Dosage: 40 MG, QD
  13. MAGNESIUM OXIDE [Concomitant]
     Dosage: 800 MG, BID
  14. METOLAZONE [Concomitant]
     Dosage: 2.5 MG, QD
  15. METOPROLOL TARTRATE [Concomitant]
     Dosage: 50 MG, BID
  16. MYCOPHENOLATE [Concomitant]
     Dosage: 1000 MG, BID
  17. PANTOPRAZOLE [Concomitant]
     Dosage: 40 MG, BID
  18. PREDNISONE [Concomitant]
     Dosage: 5 MG, QD
  19. WARFARIN [Concomitant]
     Dosage: 5 MG, QD
  20. WARFARIN [Concomitant]
     Dosage: 2.5 MG, QD

REACTIONS (4)
  - Activities of daily living impaired [Unknown]
  - Hiccups [Unknown]
  - Treatment failure [Unknown]
  - Jaundice cholestatic [None]
